FAERS Safety Report 5304654-7 (Version None)
Quarter: 2007Q2

REPORT INFORMATION
  Report Type: 
  Country: None (occurrence: None)
  Receive Date: 20070423
  Receipt Date: 20070412
  Transmission Date: 20071010
  Serious: Yes (Death, Hospitalization)
  Sender: FDA-Public Use
  Company Number: US-GENENTECH-239938

PATIENT
  Age: 69 Year
  Sex: Female

DRUGS (1)
  1. HERCEPTIN [Suspect]
     Indication: BREAST CANCER
     Dosage: UNK, Q3W

REACTIONS (3)
  - ATRIAL FIBRILLATION [None]
  - PNEUMONIA ASPIRATION [None]
  - SEPSIS [None]
